FAERS Safety Report 10528513 (Version 1)
Quarter: 2014Q4

REPORT INFORMATION
  Report Type: Spontaneous
  Country: US (occurrence: None)
  Receive Date: 20141017
  Receipt Date: 20141017
  Transmission Date: 20150528
  Serious: Yes (Other)
  Sender: FDA-Public Use
  Company Number: None

PATIENT
  Age: 31 Year
  Sex: Female
  Weight: 55 kg

DRUGS (1)
  1. SEPTOCAINE [Suspect]
     Active Substance: ARTICAINE HYDROCHLORIDE\EPINEPHRINE BITARTRATE
     Indication: ENDODONTIC PROCEDURE
     Dosage: DENTAL PROCEDURE

REACTIONS (7)
  - Eye irritation [None]
  - Hypoaesthesia [None]
  - Vision blurred [None]
  - Paralysis [None]
  - Eye injury [None]
  - Visual acuity reduced [None]
  - Blepharospasm [None]

NARRATIVE: CASE EVENT DATE: 20111006
